FAERS Safety Report 5194401-4 (Version None)
Quarter: 2006Q4

REPORT INFORMATION
  Report Type: 
  Country: None (occurrence: None)
  Receive Date: 20061228
  Receipt Date: 20061220
  Transmission Date: 20070319
  Serious: Yes (Hospitalization, Other)
  Sender: FDA-Public Use
  Company Number: US-PFIZER INC-2006155516

PATIENT
  Sex: Female
  Weight: 37.2 kg

DRUGS (11)
  1. CHANTIX [Suspect]
     Indication: SMOKING CESSATION THERAPY
     Dates: start: 20060101, end: 20060101
  2. XOPENEX [Concomitant]
  3. ALBUTEROL [Concomitant]
  4. ADVAIR DISKUS 100/50 [Concomitant]
  5. SPIRIVA ^PFIZER^ [Concomitant]
  6. PREDNISONE TAB [Concomitant]
  7. SINGULAIR [Concomitant]
  8. PRILOSEC [Concomitant]
  9. FOSAMAX [Concomitant]
  10. MUCINEX [Concomitant]
  11. MIRAPEX [Concomitant]

REACTIONS (3)
  - ASTHMA [None]
  - STOMACH DISCOMFORT [None]
  - VIRAL INFECTION [None]
